FAERS Safety Report 10489944 (Version 1)
Quarter: 2014Q4

REPORT INFORMATION
  Report Type: Spontaneous
  Country: US (occurrence: US)
  Receive Date: 20141002
  Receipt Date: 20141002
  Transmission Date: 20150528
  Serious: No
  Sender: FDA-Public Use
  Company Number: US-BAYER-2014-146596

PATIENT
  Age: 64 Year
  Sex: Male
  Weight: 88 kg

DRUGS (1)
  1. ALEVE [Suspect]
     Active Substance: NAPROXEN SODIUM
     Indication: MYALGIA
     Dosage: 1 UNK, UNK
     Route: 048
     Dates: start: 201408

REACTIONS (3)
  - Expired product administered [None]
  - Incorrect drug administration duration [None]
  - Diarrhoea [None]

NARRATIVE: CASE EVENT DATE: 2014
